FAERS Safety Report 5860720-9 (Version None)
Quarter: 2008Q3

REPORT INFORMATION
  Report Type: 
  Country: None (occurrence: None)
  Receive Date: 20080826
  Receipt Date: 20080815
  Transmission Date: 20090109
  Serious: Yes (Other)
  Sender: FDA-Public Use
  Company Number: ALL1-2008-02312

PATIENT
  Age: 9 Year
  Sex: Male
  Weight: 32.7 kg

DRUGS (1)
  1. VYVANSE(LISDEXAMFETAMINE DIMESYLATE) CAPSULE [Suspect]
     Indication: ATTENTION DEFICIT/HYPERACTIVITY DISORDER
     Dosage: 30 MG, 1X/DAY:QD,ORAL
     Route: 048
     Dates: start: 20080518, end: 20080713

REACTIONS (7)
  - AGGRESSION [None]
  - AGITATION [None]
  - DECREASED APPETITE [None]
  - INSOMNIA [None]
  - NEGATIVISM [None]
  - SELF-INJURIOUS IDEATION [None]
  - SUICIDAL IDEATION [None]
